FAERS Safety Report 18627016 (Version 2)
Quarter: 2021Q4

REPORT INFORMATION
  Report Type: Report from Study
  Country: PA (occurrence: PA)
  Receive Date: 20201217
  Receipt Date: 20211006
  Transmission Date: 20220304
  Serious: Yes (Other)
  Sender: FDA-Public Use
  Company Number: NVSC2020PA331027

PATIENT
  Age: 62 Year
  Sex: Male

DRUGS (1)
  1. EXFORGE [Suspect]
     Active Substance: AMLODIPINE BESYLATE\VALSARTAN
     Indication: Cardiac disorder
     Dosage: 5/160 MG (STARTED 10 YEARS AGO)
     Route: 065

REACTIONS (2)
  - Infarction [Unknown]
  - Product use in unapproved indication [Unknown]
